FAERS Safety Report 12319697 (Version 2)
Quarter: 2016Q4

REPORT INFORMATION
  Report Type: Spontaneous
  Country: US (occurrence: US)
  Receive Date: 20160429
  Receipt Date: 20161013
  Transmission Date: 20170207
  Serious: No
  Sender: FDA-Public Use
  Company Number: US-ROCHE-1629475

PATIENT
  Age: 81 Year
  Sex: Male

DRUGS (11)
  1. ESBRIET [Suspect]
     Active Substance: PIRFENIDONE
     Route: 048
     Dates: start: 20150827
  2. COUMADIN [Concomitant]
     Active Substance: WARFARIN SODIUM
     Indication: ATRIAL FIBRILLATION
     Route: 065
     Dates: start: 1996
  3. CALTRATE [Concomitant]
     Active Substance: CALCIUM CARBONATE
  4. ELIQUIS [Concomitant]
     Active Substance: APIXABAN
  5. ESBRIET [Suspect]
     Active Substance: PIRFENIDONE
     Indication: IDIOPATHIC PULMONARY FIBROSIS
     Dosage: 3 THREE TIMES-MORNING, MID-DAY, AFTERNNOON
     Route: 048
     Dates: start: 20150919
  6. LUMIGAN [Concomitant]
     Active Substance: BIMATOPROST
  7. FERROUS GLUCONATE [Concomitant]
     Active Substance: FERROUS GLUCONATE
     Dosage: TABLET, 1 IN THE MORNING AND 1 AT NIGHT?WAS LOW FOR 6 TO 8 MONTHS, CONDITION NOT SPECIFIED
     Route: 065
  8. VITAMIN B12 [Concomitant]
     Active Substance: CYANOCOBALAMIN
  9. TAMSULOSIN [Concomitant]
     Active Substance: TAMSULOSIN
  10. METOPROLOL. [Concomitant]
     Active Substance: METOPROLOL
  11. ESBRIET [Suspect]
     Active Substance: PIRFENIDONE
     Route: 048
     Dates: start: 20150926

REACTIONS (5)
  - Pain [Not Recovered/Not Resolved]
  - Fatigue [Unknown]
  - Agitation [Not Recovered/Not Resolved]
  - Gastrooesophageal reflux disease [Not Recovered/Not Resolved]
  - Constipation [Not Recovered/Not Resolved]

NARRATIVE: CASE EVENT DATE: 20150919
